FAERS Safety Report 8186118-9 (Version None)
Quarter: 2012Q1

REPORT INFORMATION
  Report Type: 
  Country: None (occurrence: None)
  Receive Date: 20120301
  Receipt Date: 20120217
  Transmission Date: 20120608
  Serious: Yes (Other)
  Sender: FDA-Public Use
  Company Number: 12-115

PATIENT
  Age: 75 Year
  Sex: Male
  Weight: 93 kg

DRUGS (2)
  1. ALEVE (CAPLET) [Suspect]
     Dosage: 2DF / QD / ORAL
     Route: 048
     Dates: start: 20101001, end: 20111101
  2. SOTALOL HCL [Suspect]

REACTIONS (3)
  - RENAL IMPAIRMENT [None]
  - BLOOD COUNT ABNORMAL [None]
  - PROTEIN URINE PRESENT [None]
